FAERS Safety Report 5773798-8 (Version None)
Quarter: 2008Q2

REPORT INFORMATION
  Report Type: 
  Country: None (occurrence: None)
  Receive Date: 20080601
  Receipt Date: 20080225
  Transmission Date: 20081010
  Serious: No
  Sender: FDA-Public Use
  Company Number: US200802005879

PATIENT
  Age: 71 Year
  Sex: Female
  Weight: 86.2 kg

DRUGS (8)
  1. BYETTA [Suspect]
     Indication: TYPE 2 DIABETES MELLITUS
     Dosage: 5 UG, 2/D, SUBCUTANEOUS;
     Route: 058
     Dates: start: 20060701
  2. EXENATIDE 5MCG PEN, DISPOSABLE DEVICE (EXENATIDE PEN (5MCG)) PEN,DISPO [Concomitant]
  3. EXENATIDE 5MCG PEN, DISPOSABLE DEVICE (EXENATIDE PEN (5MCG)) PEN,DISPO [Concomitant]
  4. METFORMIN HCL [Concomitant]
  5. QUINAPRIL HCL [Concomitant]
  6. LEVOTHYROXINE SODIUM [Concomitant]
  7. FLEXAMIN (CHONDROITIN SULFATE, GLUCOSAMINE SULFATE) [Concomitant]
  8. ASPIRIN/USA/ (ACETYLSALICYLIC ACID) [Concomitant]

REACTIONS (6)
  - DRY SKIN [None]
  - PRURITUS [None]
  - RASH [None]
  - SKIN WRINKLING [None]
  - THYROID FUNCTION TEST ABNORMAL [None]
  - WEIGHT DECREASED [None]
